FAERS Safety Report 14359377 (Version 1)
Quarter: 2018Q1

REPORT INFORMATION
  Report Type: Spontaneous
  Country: US (occurrence: US)
  Receive Date: 20180105
  Receipt Date: 20180105
  Transmission Date: 20180509
  Serious: No
  Sender: FDA-Public Use
  Company Number: US-SA-BI2017BI001797

PATIENT
  Sex: Female

DRUGS (2)
  1. BUSCO RANITIDINE [Suspect]
     Active Substance: RANITIDINE HYDROCHLORIDE
     Indication: DYSPEPSIA
     Dosage: 1 TABLET ONCE A DAY;  FORM STRENGTH: 150 MG; FORMULATION: TABLET? ADMINISTRATION CORRECT? YES ?ACTIO
     Route: 048
     Dates: start: 201601
  2. BUSCO RANITIDINE [Suspect]
     Active Substance: RANITIDINE HYDROCHLORIDE
     Indication: DYSPEPSIA
     Dosage: 1 TABLET ONCE A DAY;  FORM STRENGTH: 150 MG; FORMULATION: TABLET? ADMINISTRATION CORRECT? YES ?ACTIO
     Route: 048
     Dates: start: 201601

REACTIONS (2)
  - Adverse reaction [Unknown]
  - Adverse drug reaction [Unknown]
